FAERS Safety Report 24528302 (Version 1)
Quarter: 2024Q4

REPORT INFORMATION
  Report Type: Spontaneous
  Country: US (occurrence: None)
  Receive Date: 20241018
  Receipt Date: 20241018
  Transmission Date: 20250115
  Serious: No
  Sender: Public
  Company Number: None

PATIENT
  Age: 75 Year
  Sex: Male

DRUGS (1)
  1. PEMBROLIZUMAB [Suspect]
     Active Substance: PEMBROLIZUMAB
     Indication: Non-small cell lung cancer
     Dates: start: 20240221, end: 20240305

REACTIONS (5)
  - Severe cutaneous adverse reaction [None]
  - Mucosal ulceration [None]
  - Psoriasis [None]
  - Erythema multiforme [None]
  - Paraneoplastic pemphigus [None]

NARRATIVE: CASE EVENT DATE: 20240327
